FAERS Safety Report 5829542-9 (Version None)
Quarter: 2008Q3

REPORT INFORMATION
  Report Type: 
  Country: None (occurrence: None)
  Receive Date: 20080729
  Receipt Date: 20080716
  Transmission Date: 20090109
  Serious: Yes (Other)
  Sender: FDA-Public Use
  Company Number: 236736J08USA

PATIENT
  Age: 31 Year
  Sex: Male

DRUGS (2)
  1. REBIF [Suspect]
     Indication: MULTIPLE SCLEROSIS
     Dosage: 44 MCG, 3 IN 1 WEEKS, SUBCUTANEOUS
     Route: 058
     Dates: start: 20080422, end: 20080701
  2. UNSPECIFIED MEDICATION(ALL OTHER NON-THERAPEUTIC PRODUCTS) [Concomitant]

REACTIONS (3)
  - CHONDROPATHY [None]
  - NECK PAIN [None]
  - PAIN IN EXTREMITY [None]
